FAERS Safety Report 6470232-X (Version None)
Quarter: 2009Q4

REPORT INFORMATION
  Report Type: 
  Country: None (occurrence: None)
  Receive Date: 20091203
  Receipt Date: 20080129
  Transmission Date: 20100525
  Serious: Yes (Hospitalization)
  Sender: FDA-Public Use
  Company Number: FR-ELI_LILLY_AND_COMPANY-FR200712004402

PATIENT
  Age: 70 Year
  Sex: Female

DRUGS (2)
  1. FORTEO [Suspect]
     Indication: OSTEOPOROSIS
     Dosage: 20 UG, DAILY (1/D)
     Route: 058
     Dates: start: 20070201
  2. TRIVASTAL [Concomitant]
     Dosage: 3 D/F, DAILY (1/D)
     Route: 048

REACTIONS (2)
  - GASTRIC ULCER HELICOBACTER [None]
  - WEIGHT DECREASED [None]
